FAERS Safety Report 5796873-0 (Version None)
Quarter: 2008Q2

REPORT INFORMATION
  Report Type: 
  Country: None (occurrence: None)
  Receive Date: 20080627
  Receipt Date: 20080619
  Transmission Date: 20081010
  Serious: Yes (Other)
  Sender: FDA-Public Use
  Company Number: 114-21880-08061238

PATIENT
  Age: 54 Year
  Sex: Male

DRUGS (2)
  1. REVLIMID [Suspect]
     Indication: MULTIPLE MYELOMA
     Dosage: 25 MG, D1-21, ORAL
     Route: 048
     Dates: start: 20080611
  2. DEXAMETHASONE TAB [Suspect]
     Indication: DRUG USE FOR UNKNOWN INDICATION
     Dosage: 40 MG, D1-11, UNKNOWN

REACTIONS (3)
  - FATIGUE [None]
  - FLUID RETENTION [None]
  - SENSATION OF HEAVINESS [None]
